FAERS Safety Report 4591438-0 (Version None)
Quarter: 2005Q1

REPORT INFORMATION
  Report Type: 
  Country: None (occurrence: None)
  Receive Date: 20050223
  Receipt Date: 20050223
  Transmission Date: 20050727
  Serious: Yes (Hospitalization)
  Sender: FDA-Public Use
  Company Number: None

PATIENT
  Sex: Male

DRUGS (12)
  1. DOCETAXEL [Suspect]
     Indication: NON-SMALL CELL LUNG CANCER
     Dosage: 140 MG   ONCE   INTRAVENOU
     Route: 042
     Dates: start: 20040920, end: 20040920
  2. CARBOPLATIN [Suspect]
     Indication: NON-SMALL CELL LUNG CANCER
     Dosage: 670 MG  ONCE  INTRAVENOU
     Route: 042
     Dates: start: 20040920, end: 20040920
  3. DEXAMETHASONE [Concomitant]
  4. DOCUSATE [Concomitant]
  5. FLUNISOLIDE [Concomitant]
  6. IPRATROPIUM BROMIDE [Concomitant]
  7. IBUPROFEN [Concomitant]
  8. LISINOPRIL [Concomitant]
  9. MULTIVITAMIN WITH MINERALS [Concomitant]
  10. OMEPRAZOLE [Concomitant]
  11. PAROXETINE [Concomitant]
  12. TEMAZEPAM [Concomitant]

REACTIONS (5)
  - DEHYDRATION [None]
  - DIARRHOEA [None]
  - NAUSEA [None]
  - PYREXIA [None]
  - VOMITING [None]
